FAERS Safety Report 9772700 (Version 1)
Quarter: 2013Q4

REPORT INFORMATION
  Report Type: Spontaneous
  Country: US (occurrence: US)
  Receive Date: 20131219
  Receipt Date: 20131219
  Transmission Date: 20140711
  Serious: Yes (Other)
  Sender: FDA-Public Use
  Company Number: US-SA-2013SA130512

PATIENT
  Age: 66 Year
  Sex: Female

DRUGS (1)
  1. LUMIZYME [Suspect]
     Indication: GLYCOGEN STORAGE DISEASE TYPE II
     Route: 042
     Dates: start: 20100310

REACTIONS (3)
  - Disease progression [Unknown]
  - Therapeutic response decreased [Unknown]
  - Depressed mood [Unknown]
